FAERS Safety Report 5147617-7 (Version None)
Quarter: 2006Q4

REPORT INFORMATION
  Report Type: 
  Country: None (occurrence: None)
  Receive Date: 20061108
  Receipt Date: 20061108
  Transmission Date: 20070319
  Serious: Yes (Other)
  Sender: FDA-Public Use
  Company Number: None

PATIENT
  Age: 10 Year
  Sex: Male
  Weight: 51.2565 kg

DRUGS (1)
  1. METHYLPHENIDATE HCL [Suspect]
     Indication: ATTENTION DEFICIT/HYPERACTIVITY DISORDER
     Dosage: 5MG PO Q4PM PRN
     Route: 048
     Dates: start: 20060627

REACTIONS (2)
  - ABNORMAL BEHAVIOUR [None]
  - ANXIETY [None]
